FAERS Safety Report 21694350 (Version 1)
Quarter: 2022Q4

REPORT INFORMATION
  Report Type: Spontaneous
  Country: MX (occurrence: MX)
  Receive Date: 20221207
  Receipt Date: 20221207
  Transmission Date: 20230112
  Serious: Yes (Hospitalization)
  Sender: FDA-Public Use
  Company Number: MX-002147023-NVSC2022MX239107

PATIENT
  Sex: Female
  Weight: 13 kg

DRUGS (3)
  1. CLOBAZAM [Suspect]
     Active Substance: CLOBAZAM
     Indication: Seizure
     Dosage: 2 DOSAGE FORM (HALF TABLET IN THE MORNING, HALF TABLET IN THE AFTERNOON, AND 1 TABLET AT NIGHT)
     Route: 048
     Dates: start: 2021
  2. CLOBAZAM [Suspect]
     Active Substance: CLOBAZAM
     Indication: Severe myoclonic epilepsy of infancy
  3. LEVETIRACETAM [Suspect]
     Active Substance: LEVETIRACETAM
     Indication: Seizure
     Dosage: 375 MG (3/4TH TABLET OF 500 MG), Q12H (STARTED 3 YEARS AGO)
     Route: 048

REACTIONS (5)
  - Seizure [Recovered/Resolved]
  - Pyrexia [Recovered/Resolved]
  - Viral abdominal infection [Recovered/Resolved]
  - Product availability issue [Unknown]
  - Off label use [Not Recovered/Not Resolved]

NARRATIVE: CASE EVENT DATE: 20210101
